FAERS Safety Report 10477551 (Version 10)
Quarter: 2016Q3

REPORT INFORMATION
  Report Type: Report from Study
  Country: AU (occurrence: AU)
  Receive Date: 20140926
  Receipt Date: 20160719
  Transmission Date: 20161109
  Serious: Yes (Other)
  Sender: FDA-Public Use
  Company Number: PHHY2014AU120119

PATIENT
  Age: 86 Year
  Sex: Male
  Weight: 90 kg

DRUGS (11)
  1. NILOTINIB [Suspect]
     Active Substance: NILOTINIB
     Indication: CHRONIC MYELOID LEUKAEMIA
     Dosage: 400 MG, BID
     Route: 048
     Dates: start: 201107, end: 201111
  2. SPIRACTIN//SPIRONOLACTONE [Concomitant]
     Indication: PRODUCT USED FOR UNKNOWN INDICATION
     Dosage: 0.5 DF, BID (HALF TABLET TWICE DAY)
     Route: 065
  3. GLIVEC [Suspect]
     Active Substance: IMATINIB MESYLATE
     Indication: CHRONIC MYELOID LEUKAEMIA
     Dosage: UNK
     Route: 048
     Dates: end: 2011
  4. AVAPRO [Concomitant]
     Active Substance: IRBESARTAN
     Indication: PRODUCT USED FOR UNKNOWN INDICATION
     Route: 065
  5. ASPIRIN. [Concomitant]
     Active Substance: ASPIRIN
     Indication: PRODUCT USED FOR UNKNOWN INDICATION
     Route: 065
  6. GLIVEC [Suspect]
     Active Substance: IMATINIB MESYLATE
     Dosage: 400 MG, QD
     Route: 048
     Dates: start: 20140612, end: 20141222
  7. DASATINIB [Suspect]
     Active Substance: DASATINIB
     Indication: PRODUCT USED FOR UNKNOWN INDICATION
     Dosage: UNK
     Route: 065
     Dates: start: 201112
  8. ASPIRIN. [Concomitant]
     Active Substance: ASPIRIN
     Indication: PRODUCT USED FOR UNKNOWN INDICATION
     Dosage: 100 MG, QD
     Route: 065
  9. GLIVEC [Suspect]
     Active Substance: IMATINIB MESYLATE
     Dosage: 400 MG, QD
     Route: 048
     Dates: start: 201405
  10. GLIVEC [Suspect]
     Active Substance: IMATINIB MESYLATE
     Dosage: 400 MG, QD
     Route: 048
     Dates: start: 201502
  11. CRESTOR [Concomitant]
     Active Substance: ROSUVASTATIN CALCIUM
     Indication: PRODUCT USED FOR UNKNOWN INDICATION
     Dosage: 10 MG, QD
     Route: 048

REACTIONS (27)
  - Neutrophil count increased [Recovered/Resolved]
  - Hypertonic bladder [Unknown]
  - Pulse absent [Unknown]
  - Dyspnoea exertional [Unknown]
  - Monocytosis [Unknown]
  - Pruritus [Unknown]
  - Coronary artery disease [Unknown]
  - White blood cell count increased [Recovered/Resolved]
  - Anisocytosis [Unknown]
  - Neuropathy peripheral [Unknown]
  - Malaise [Unknown]
  - Drug resistance [Unknown]
  - Balance disorder [Unknown]
  - Rhinorrhoea [Unknown]
  - Vision blurred [Unknown]
  - Pain in extremity [Unknown]
  - Pulmonary hypertension [Unknown]
  - Pleural effusion [Unknown]
  - Red blood cell elliptocytes present [Unknown]
  - Rash [Recovered/Resolved]
  - Skin exfoliation [Unknown]
  - Pulmonary toxicity [Unknown]
  - Peripheral venous disease [Unknown]
  - Peripheral vascular disorder [Unknown]
  - Thrombocytosis [Unknown]
  - Insomnia [Unknown]
  - Platelet count increased [Recovered/Resolved]

NARRATIVE: CASE EVENT DATE: 20140612
